FAERS Safety Report 23050955 (Version 1)
Quarter: 2023Q4

REPORT INFORMATION
  Report Type: Spontaneous
  Country: US (occurrence: US)
  Receive Date: 20231010
  Receipt Date: 20231010
  Transmission Date: 20240110
  Serious: No
  Sender: FDA-Public Use
  Company Number: US-SA-SAC20231005000413

PATIENT
  Sex: Male
  Weight: 108 kg

DRUGS (3)
  1. DUPIXENT [Suspect]
     Active Substance: DUPILUMAB
     Indication: Dermatitis atopic
     Dosage: 300 MG , EVERY OTHER WEEK
     Route: 058
     Dates: start: 201910
  2. PREDNISONE [Concomitant]
     Active Substance: PREDNISONE
  3. DOXEPIN [Concomitant]
     Active Substance: DOXEPIN

REACTIONS (1)
  - Rash macular [Not Recovered/Not Resolved]
